FAERS Safety Report 13102560 (Version 1)
Quarter: 2017Q1

REPORT INFORMATION
  Report Type: Spontaneous
  Country: US (occurrence: US)
  Receive Date: 20170110
  Receipt Date: 20170110
  Transmission Date: 20170428
  Serious: No
  Sender: FDA-Public Use
  Company Number: US-PFIZER INC-2017010060

PATIENT
  Age: 32 Year
  Sex: Female

DRUGS (1)
  1. GABAPENTIN. [Suspect]
     Active Substance: GABAPENTIN
     Dosage: 900 MG, 3X/DAY (THREE 300MG TABLETS THREE TIMES A DAY)

REACTIONS (6)
  - Drug ineffective [Unknown]
  - Drug withdrawal syndrome [Unknown]
  - Pain [Unknown]
  - Vomiting [Unknown]
  - Feeling abnormal [Unknown]
  - Speech disorder [Unknown]
